FAERS Safety Report 23090346 (Version 2)
Quarter: 2024Q2

REPORT INFORMATION
  Report Type: Other
  Country: JP (occurrence: JP)
  Receive Date: 20231020
  Receipt Date: 20240531
  Transmission Date: 20240715
  Serious: Yes (Hospitalization)
  Sender: FDA-Public Use
  Company Number: JP-CHUGAI-2023028103

PATIENT
  Age: 34 Year
  Sex: Female

DRUGS (13)
  1. ACTEMRA [Suspect]
     Active Substance: TOCILIZUMAB
     Indication: Juvenile idiopathic arthritis
     Dosage: UNK
     Route: 042
  2. ACTEMRA [Suspect]
     Active Substance: TOCILIZUMAB
     Indication: Secondary amyloidosis
     Route: 042
  3. METHYLDOPA [Suspect]
     Active Substance: METHYLDOPA
     Indication: Blood pressure measurement
     Route: 065
  4. LABETALOL [Suspect]
     Active Substance: LABETALOL\LABETALOL HYDROCHLORIDE
     Indication: Blood pressure measurement
     Route: 065
  5. ASPIRIN [Suspect]
     Active Substance: ASPIRIN
     Indication: Prophylaxis
     Dosage: ADMINISTERED AT 12-31 WEEKS OF GESTATION
     Route: 065
  6. HYDRALAZINE [Suspect]
     Active Substance: HYDRALAZINE HYDROCHLORIDE
     Indication: Blood pressure measurement
     Route: 065
  7. METHOTREXATE [Concomitant]
     Active Substance: METHOTREXATE
  8. BUCILLAMINE [Concomitant]
     Active Substance: BUCILLAMINE
  9. SULFASALAZINE [Concomitant]
     Active Substance: SULFASALAZINE
  10. ABATACEPT [Concomitant]
     Active Substance: ABATACEPT
  11. ADALIMUMAB [Concomitant]
     Active Substance: ADALIMUMAB\ISOPROPYL ALCOHOL
  12. CARVEDILOL [Concomitant]
     Active Substance: CARVEDILOL
  13. OXYTOCIN [Concomitant]
     Active Substance: OXYTOCIN

REACTIONS (6)
  - Pre-eclampsia [Unknown]
  - Endometritis [Unknown]
  - Protein urine present [Unknown]
  - Maternal exposure before pregnancy [Unknown]
  - Maternal exposure during pregnancy [Unknown]
  - Off label use [Unknown]
